FAERS Safety Report 6050718-2 (Version None)
Quarter: 2009Q1

REPORT INFORMATION
  Report Type: 
  Country: None (occurrence: None)
  Receive Date: 20090126
  Receipt Date: 20080110
  Transmission Date: 20090719
  Serious: No
  Sender: FDA-Public Use
  Company Number: US-TYCO HEALTHCARE/MALLINCKRODT-T200701567

PATIENT

DRUGS (1)
  1. OPTIRAY 300 [Suspect]
     Dosage: UNK, SINGLE
     Dates: start: 20071115, end: 20071115

REACTIONS (4)
  - CHEST PAIN [None]
  - PRURITUS [None]
  - THROAT IRRITATION [None]
  - URTICARIA [None]
